FAERS Safety Report 20611505 (Version 3)
Quarter: 2025Q3

REPORT INFORMATION
  Report Type: Spontaneous
  Country: US (occurrence: US)
  Receive Date: 20220318
  Receipt Date: 20250809
  Transmission Date: 20251020
  Serious: Yes (Other)
  Sender: AMGEN
  Company Number: US-HORIZON THERAPEUTICS-HZN-2022-001027

PATIENT
  Age: 60 Year
  Sex: Female
  Weight: 100.68 kg

DRUGS (13)
  1. TEPEZZA [Suspect]
     Active Substance: TEPROTUMUMAB-TRBW
     Indication: Endocrine ophthalmopathy
     Dosage: UNK UNK, Q3WK
     Route: 042
     Dates: start: 20210922
  2. TEPEZZA [Suspect]
     Active Substance: TEPROTUMUMAB-TRBW
     Indication: Toxic goitre
     Dosage: UNK UNK, Q3WK
     Route: 042
     Dates: start: 20211013
  3. TEPEZZA [Suspect]
     Active Substance: TEPROTUMUMAB-TRBW
     Dosage: UNK UNK, Q3WK
     Route: 042
     Dates: start: 20211103
  4. TEPEZZA [Suspect]
     Active Substance: TEPROTUMUMAB-TRBW
     Dosage: UNK UNK, Q3WK
     Route: 042
     Dates: start: 20211123
  5. TEPEZZA [Suspect]
     Active Substance: TEPROTUMUMAB-TRBW
     Dosage: UNK UNK, Q3WK
     Route: 042
     Dates: start: 20211214
  6. TEPEZZA [Suspect]
     Active Substance: TEPROTUMUMAB-TRBW
     Dosage: UNK UNK, Q3WK
     Route: 042
     Dates: start: 20220104
  7. TEPEZZA [Suspect]
     Active Substance: TEPROTUMUMAB-TRBW
     Dosage: UNK UNK, Q3WK
     Route: 042
     Dates: start: 20220126
  8. TEPEZZA [Suspect]
     Active Substance: TEPROTUMUMAB-TRBW
     Dosage: UNK UNK, Q3WK
     Route: 042
     Dates: start: 20220216
  9. TEPEZZA [Suspect]
     Active Substance: TEPROTUMUMAB-TRBW
     Route: 040
     Dates: start: 202209
  10. TYLENOL [Concomitant]
     Active Substance: ACETAMINOPHEN
  11. HUMIRA [Concomitant]
     Active Substance: ADALIMUMAB
  12. METHOTREXATE [Concomitant]
     Active Substance: METHOTREXATE
     Dosage: UNK UNK, Q2WK
     Dates: start: 20200912
  13. METHOTREXATE [Concomitant]
     Active Substance: METHOTREXATE

REACTIONS (21)
  - Rectal haemorrhage [Recovering/Resolving]
  - Diverticulitis [Recovered/Resolved]
  - Vulvovaginal pain [Recovering/Resolving]
  - Vaginal haemorrhage [Recovered/Resolved]
  - Headache [Not Recovered/Not Resolved]
  - Muscle spasms [Recovering/Resolving]
  - Alopecia [Not Recovered/Not Resolved]
  - Irritable bowel syndrome [Unknown]
  - Diplopia [Not Recovered/Not Resolved]
  - Epistaxis [Unknown]
  - Fatigue [Unknown]
  - Weight decreased [Unknown]
  - Tinnitus [Unknown]
  - Nausea [Unknown]
  - Depressed mood [Unknown]
  - Diarrhoea [Unknown]
  - Thyroid stimulating immunoglobulin increased [Unknown]
  - Heart rate increased [Unknown]
  - Injection site discolouration [Unknown]
  - Off label use [Unknown]
  - Injection site swelling [Unknown]

NARRATIVE: CASE EVENT DATE: 20210929
